FAERS Safety Report 24308590 (Version 1)
Quarter: 2024Q3

REPORT INFORMATION
  Report Type: Spontaneous
  Country: JP (occurrence: JP)
  Receive Date: 20240911
  Receipt Date: 20240911
  Transmission Date: 20241017
  Serious: Yes (Other)
  Sender: NX DEVELOPMENT CORPORATION
  Company Number: JP-NXDC-2024GLE00067

PATIENT
  Age: 60 Year
  Sex: Male

DRUGS (2)
  1. AMINOLEVULINIC ACID HYDROCHLORIDE [Suspect]
     Active Substance: AMINOLEVULINIC ACID HYDROCHLORIDE
     Indication: Glioblastoma
     Route: 048
  2. TALAPORFIN SODIUM [Concomitant]
     Active Substance: TALAPORFIN SODIUM
     Indication: Glioblastoma
     Route: 042

REACTIONS (2)
  - Meningitis bacterial [Unknown]
  - Hepatic function abnormal [Recovering/Resolving]
